FAERS Safety Report 8959807 (Version 1)
Quarter: 2012Q4

REPORT INFORMATION
  Report Type: 
  Country: CO (occurrence: CO)
  Receive Date: 20121212
  Receipt Date: 20121212
  Transmission Date: 20130627
  Serious: Yes (Other)
  Sender: FDA-Public Use
  Company Number: CO-AMGEN-COLSP2012036073

PATIENT
  Age: 46 Year
  Sex: Female

DRUGS (7)
  1. ENBREL [Suspect]
     Indication: RHEUMATOID ARTHRITIS
     Dosage: 50 mg, weekly
     Route: 058
     Dates: start: 2004
  2. PREDNISOLONE [Concomitant]
     Indication: RHEUMATOID ARTHRITIS
     Dosage: 50 mg, 1x/day
     Route: 048
     Dates: start: 2003
  3. FLUOXETINE [Concomitant]
     Indication: DEPRESSION
     Dosage: 20 mg, UNK
  4. METHOTREXATE [Concomitant]
     Indication: RHEUMATOID ARTHRITIS
     Dosage: 2.5 mg, 8 tablets weekly
     Route: 048
     Dates: start: 2003
  5. METHOTREXATE [Concomitant]
     Dosage: 2.5 mg, from 3 or 5 tablet
     Route: 048
     Dates: start: 2003
  6. METHOTREXATE [Concomitant]
     Dosage: 4 tablets of 2.5mg, weekly (ob saturdays)
     Route: 048
     Dates: start: 2008
  7. CALCIUM D                          /00944201/ [Concomitant]
     Indication: RHEUMATOID ARTHRITIS
     Dosage: UNK
     Route: 048
     Dates: start: 2003

REACTIONS (14)
  - Cholelithiasis [Recovered/Resolved]
  - Ear injury [Not Recovered/Not Resolved]
  - Influenza [Recovered/Resolved]
  - Nervousness [Unknown]
  - Oedema peripheral [Recovering/Resolving]
  - Pain [Recovered/Resolved]
  - Gait disturbance [Recovered/Resolved]
  - Weight decreased [Not Recovered/Not Resolved]
  - Cough [Recovered/Resolved]
  - Vertigo [Not Recovered/Not Resolved]
  - Fall [Not Recovered/Not Resolved]
  - Injection site bruising [Not Recovered/Not Resolved]
  - Injection site rash [Not Recovered/Not Resolved]
  - Injection site erythema [Not Recovered/Not Resolved]
